FAERS Safety Report 7611572-8 (Version None)
Quarter: 2011Q3

REPORT INFORMATION
  Report Type: 
  Country: None (occurrence: None)
  Receive Date: 20110715
  Receipt Date: 20110708
  Transmission Date: 20111222
  Serious: Yes (Other)
  Sender: FDA-Public Use
  Company Number: US-GLAXOSMITHKLINE-A0936075A

PATIENT
  Age: 41 Year
  Sex: Female

DRUGS (12)
  1. FIORICET [Concomitant]
  2. IBUPROFEN [Concomitant]
  3. LEVOTHYROXINE [Concomitant]
  4. LAMICTAL [Suspect]
     Indication: AFFECTIVE DISORDER
     Dosage: 25MG PER DAY
     Route: 048
     Dates: start: 20050101, end: 20050101
  5. AMBIEN [Concomitant]
  6. PROZAC [Concomitant]
  7. KLONOPIN [Concomitant]
  8. LAMICTAL XR [Suspect]
     Indication: PARTIAL SEIZURES
     Dosage: 25MG PER DAY
     Route: 048
     Dates: start: 20110101, end: 20110101
  9. SUDAFED 12 HOUR [Concomitant]
  10. SEROQUEL [Concomitant]
  11. NORTRIPTYLINE HCL [Concomitant]
  12. CYCLOBENAZPRINE [Concomitant]

REACTIONS (18)
  - RASH [None]
  - NAUSEA [None]
  - NARCOLEPSY [None]
  - ORAL HERPES [None]
  - SPEECH DISORDER [None]
  - SKIN ULCER [None]
  - MIDDLE INSOMNIA [None]
  - VISUAL IMPAIRMENT [None]
  - EATING DISORDER [None]
  - SCAB [None]
  - DYSGEUSIA [None]
  - AGGRESSION [None]
  - VOMITING [None]
  - FALL [None]
  - ANGER [None]
  - BALANCE DISORDER [None]
  - DYSPHONIA [None]
  - ADVERSE EVENT [None]
